FAERS Safety Report 8903232 (Version 6)
Quarter: 2014Q1

REPORT INFORMATION
  Report Type: Spontaneous
  Country: US (occurrence: US)
  Receive Date: 20121112
  Receipt Date: 20140122
  Transmission Date: 20141002
  Serious: Yes (Hospitalization, Other)
  Sender: FDA-Public Use
  Company Number: US-009507513-1211USA004332

PATIENT
  Sex: Female
  Weight: 67.57 kg

DRUGS (3)
  1. FOSAMAX [Suspect]
     Indication: OSTEOPENIA
     Dosage: 70 MG, QW
     Route: 048
  2. LUMIGAN [Concomitant]
     Indication: INTRAOCULAR PRESSURE INCREASED
     Dosage: UNK
     Dates: start: 200108, end: 200512
  3. ALPHAGAN [Concomitant]
     Indication: INTRAOCULAR PRESSURE INCREASED
     Dosage: UNK
     Dates: start: 200302, end: 201002

REACTIONS (21)
  - Open reduction of fracture [Recovered/Resolved]
  - Fall [Recovered/Resolved]
  - Femur fracture [Recovered/Resolved]
  - Hypertension [Not Recovered/Not Resolved]
  - Nasopharyngitis [Unknown]
  - Bursitis [Unknown]
  - Iliotibial band syndrome [Unknown]
  - Osteoarthritis [Unknown]
  - Osteopenia [Unknown]
  - Nasopharyngitis [Unknown]
  - Osteoarthritis [Unknown]
  - Intervertebral disc space narrowing [Unknown]
  - Arthropathy [Unknown]
  - Cataract [Unknown]
  - Cataract operation [Unknown]
  - Hypertension [Recovered/Resolved]
  - Pyrexia [Unknown]
  - Pyrexia [Unknown]
  - Arthralgia [Unknown]
  - Pain in extremity [Unknown]
  - Arthralgia [Unknown]
